FAERS Safety Report 6592704-X (Version None)
Quarter: 2010Q1

REPORT INFORMATION
  Report Type: 
  Country: None (occurrence: None)
  Receive Date: 20100222
  Receipt Date: 20100209
  Transmission Date: 20100710
  Serious: Yes (Other)
  Sender: FDA-Public Use
  Company Number: GB-RANBAXY-2010RR-31025

PATIENT
  Age: 79 Year
  Sex: Female

DRUGS (7)
  1. ZOCOR [Suspect]
     Indication: BLOOD CHOLESTEROL INCREASED
     Dosage: 1 DF, QD
     Route: 048
     Dates: start: 20090101, end: 20090701
  2. ATENOLOL [Concomitant]
     Dosage: 5 MG, QD
     Route: 065
  3. CHOLECALCIFEROL [Concomitant]
     Dosage: 1 DF, QD
     Route: 065
  4. DOXAZOSIN MESYLATE [Concomitant]
     Dosage: 2 MG, QD
     Route: 065
  5. DOXAZOSIN MESYLATE [Concomitant]
     Dosage: 4 MG, QD
     Route: 065
  6. FUROSEMIDE [Concomitant]
     Dosage: 40 MG, QD
     Route: 065
  7. LOSARTAN POTASSIUM [Concomitant]
     Dosage: 10 MG, QD
     Route: 065

REACTIONS (2)
  - MUSCULOSKELETAL DISCOMFORT [None]
  - MYALGIA [None]
